FAERS Safety Report 7878759-0 (Version None)
Quarter: 2011Q4

REPORT INFORMATION
  Report Type: 
  Country: None (occurrence: None)
  Receive Date: 20111021
  Receipt Date: 20110718
  Transmission Date: 20120403
  Serious: No
  Sender: FDA-Public Use
  Company Number: US-004840

PATIENT
  Sex: Male
  Weight: 73.4827 kg

DRUGS (2)
  1. DEGARELIX (240 MG, 80 MG) [Suspect]
     Indication: PROSTATE CANCER
     Dosage: (240 MG TOTAL SUBCUTANEOUS) ; (80 MG 1X/MONTH SUBCUTANEOUS)
     Route: 058
     Dates: start: 20101210, end: 20110401
  2. DEGARELIX (240 MG, 80 MG) [Suspect]
     Indication: PROSTATE CANCER
     Dosage: (240 MG TOTAL SUBCUTANEOUS) ; (80 MG 1X/MONTH SUBCUTANEOUS)
     Route: 058
     Dates: start: 20101111, end: 20101111

REACTIONS (10)
  - INJECTION SITE PAIN [None]
  - PROSTATIC SPECIFIC ANTIGEN INCREASED [None]
  - PAIN [None]
  - INJECTION SITE MASS [None]
  - BONE PAIN [None]
  - HOT FLUSH [None]
  - DYSURIA [None]
  - INJECTION SITE ERYTHEMA [None]
  - MUSCULOSKELETAL DISCOMFORT [None]
  - INJECTION SITE DISCOLOURATION [None]
